FAERS Safety Report 13842792 (Version 1)
Quarter: 2017Q3

REPORT INFORMATION
  Report Type: Report from Study
  Country: US (occurrence: US)
  Receive Date: 20170808
  Receipt Date: 20170808
  Transmission Date: 20171127
  Serious: Yes (Other)
  Sender: FDA-Public Use
  Company Number: PHHY2016US183597

PATIENT

DRUGS (2)
  1. SYSTANE (HYPROMELLOSE 2910 (4000 MPA.S)) [Suspect]
     Active Substance: HYPROMELLOSE 2910 (4000 MPA.S)
     Indication: PRODUCT USED FOR UNKNOWN INDICATION
     Dosage: UNK
     Route: 065
  2. TEARS NATURALE FREE [Suspect]
     Active Substance: DEXTRAN 70\HYPROMELLOSE 2910 (4000 MPA.S)
     Indication: PRODUCT USED FOR UNKNOWN INDICATION
     Dosage: UNK
     Route: 065

REACTIONS (12)
  - Eye pruritus [Unknown]
  - Balance disorder [Unknown]
  - Pain in jaw [Unknown]
  - Respiratory tract infection [Unknown]
  - Temporomandibular joint syndrome [Unknown]
  - Sensitivity of teeth [Unknown]
  - Dry eye [Unknown]
  - Labyrinthitis [Unknown]
  - Asthenopia [Unknown]
  - Hypersensitivity [Unknown]
  - Migraine [Unknown]
  - Ocular hyperaemia [Unknown]
